FAERS Safety Report 22069831 (Version 2)
Quarter: 2024Q1

REPORT INFORMATION
  Report Type: Spontaneous
  Country: US (occurrence: US)
  Receive Date: 20230307
  Receipt Date: 20240226
  Transmission Date: 20240410
  Serious: No
  Sender: FDA-Public Use
  Company Number: US-AMNEAL PHARMACEUTICALS-2022-AMRX-01772

PATIENT
  Sex: Female

DRUGS (2)
  1. RYTARY [Suspect]
     Active Substance: CARBIDOPA\LEVODOPA
     Indication: Product used for unknown indication
     Dosage: 23.75-95 MG, 04 CAPSULES 03 TIMES A DAY
     Route: 065
  2. RYTARY [Suspect]
     Active Substance: CARBIDOPA\LEVODOPA
     Dosage: 48.75/195 MG 02 CAPSULES, 04 TIMES A DAY
     Route: 048
     Dates: start: 20231019

REACTIONS (5)
  - Balance disorder [Unknown]
  - Abnormal behaviour [Unknown]
  - Irritability [Unknown]
  - Nausea [Unknown]
  - Anxiety [Unknown]
